FAERS Safety Report 8543491-7 (Version None)
Quarter: 2012Q3

REPORT INFORMATION
  Report Type: 
  Country: None (occurrence: None)
  Receive Date: 20120727
  Receipt Date: 20120724
  Transmission Date: 20120928
  Serious: Yes (Hospitalization)
  Sender: FDA-Public Use
  Company Number: PHEH2012US014006

PATIENT
  Sex: Female

DRUGS (9)
  1. LYRICA [Concomitant]
  2. ZOLOFT [Concomitant]
  3. ZOCOR [Concomitant]
  4. ZYRTEC [Concomitant]
  5. TEGRETOL [Concomitant]
  6. PROTAXIL [Concomitant]
  7. MACRODENFA [Concomitant]
  8. ZEJENED [Concomitant]
  9. RECLAST [Suspect]
     Indication: OSTEOPOROSIS
     Dosage: 5 MG, YEARLY
     Route: 042
     Dates: start: 20120608

REACTIONS (3)
  - EYE SWELLING [None]
  - EYE IRRITATION [None]
  - CONVULSION [None]
